FAERS Safety Report 23647293 (Version 1)
Quarter: 2024Q1

REPORT INFORMATION
  Report Type: Spontaneous
  Country: DE (occurrence: DE)
  Receive Date: 20240319
  Receipt Date: 20240319
  Transmission Date: 20240409
  Serious: Yes (Other)
  Sender: FDA-Public Use
  Company Number: None

PATIENT
  Age: 35 Year
  Sex: Female
  Weight: 73 kg

DRUGS (5)
  1. OLANZAPINE [Suspect]
     Active Substance: OLANZAPINE
     Indication: Schizophrenia
     Dosage: SINCE 10/2018?DAILY DOSE: 15 MILLIGRAM
     Route: 048
     Dates: start: 201810
  2. OLANZAPINE [Suspect]
     Active Substance: OLANZAPINE
     Indication: Schizophrenia
     Dosage: 0. - 40. GESTATIONAL WEEK??DAILY DOSE: 15 MILLIGRAM
     Route: 048
     Dates: start: 20230202, end: 20231109
  3. SERTRALINE [Concomitant]
     Active Substance: SERTRALINE HYDROCHLORIDE
     Indication: Depression
     Dosage: DAILY DOSE: 75 MILLIGRAM
     Route: 048
     Dates: start: 201810
  4. SERTRALINE [Concomitant]
     Active Substance: SERTRALINE HYDROCHLORIDE
     Indication: Depression
     Dosage: 0. - 40. GESTATIONAL WEEK??DAILY DOSE: 75 MILLIGRAM
     Route: 048
     Dates: start: 20230202, end: 20231109
  5. DIPHTHERIA AND TETANUS TOXOIDS AND PERTUSSIS VACCINE ADSORBED NOS [Concomitant]
     Active Substance: DIPHTHERIA AND TETANUS TOXOIDS AND PERTUSSIS VACCINE
     Indication: Immunisation
     Dosage: 31. - 31. GESTATIONAL WEEK
     Route: 030
     Dates: start: 20230907, end: 20230907

REACTIONS (5)
  - Gestational diabetes [Recovered/Resolved]
  - Amniotic fluid volume increased [Recovered/Resolved]
  - COVID-19 [Unknown]
  - Premature rupture of membranes [Recovered/Resolved]
  - Exposure during pregnancy [Recovered/Resolved]
